FAERS Safety Report 18242131 (Version 2)
Quarter: 2020Q4

REPORT INFORMATION
  Report Type: Report from Study
  Country: US (occurrence: US)
  Receive Date: 20200908
  Receipt Date: 20201022
  Transmission Date: 20210113
  Serious: Yes (Hospitalization)
  Sender: FDA-Public Use
  Company Number: US-TEVA-2020-US-1825629

PATIENT
  Age: 54 Year
  Sex: Female
  Weight: 122 kg

DRUGS (6)
  1. NANOLIPOSOMAL IRINOTECAN [Suspect]
     Active Substance: IRINOTECAN
     Indication: CHOLANGIOCARCINOMA
     Dosage: NANOLIPOSOMAL IRINOTECAN
     Route: 042
     Dates: start: 20200811
  2. ZOFRAN [Concomitant]
     Active Substance: ONDANSETRON HYDROCHLORIDE
     Dosage: FREQUENCY: AS NEEDED
     Route: 048
  3. LEUCOVORIN. [Suspect]
     Active Substance: LEUCOVORIN
     Indication: CHOLANGIOCARCINOMA
     Route: 065
     Dates: start: 20200811
  4. 5-FLUOROURACIL TEVA [Suspect]
     Active Substance: FLUOROURACIL
     Indication: PANCREATIC CARCINOMA
     Dosage: FORM STRENGTH: 500 MG/10 ML, ROUTE: IV VIA CADD PUMP, DOSE: 2400 MG/M2 OVER 46 HOURS, FREQUENCY: EVE
     Route: 042
     Dates: start: 20200811
  5. COMPAZINE [Concomitant]
     Active Substance: PROCHLORPERAZINE MALEATE
     Dosage: FREQUENCY: AS NEEDED
     Route: 048
  6. 5-FLUOROURACIL TEVA [Suspect]
     Active Substance: FLUOROURACIL
     Indication: CHOLANGIOCARCINOMA

REACTIONS (3)
  - Dehydration [Unknown]
  - Vomiting [Recovered/Resolved]
  - Nausea [Not Recovered/Not Resolved]

NARRATIVE: CASE EVENT DATE: 202008
